FAERS Safety Report 19068372 (Version 1)
Quarter: 2021Q1

REPORT INFORMATION
  Report Type: Spontaneous
  Country: AU (occurrence: AU)
  Receive Date: 20210327
  Receipt Date: 20210327
  Transmission Date: 20210420
  Serious: Yes (Hospitalization, Disabling, Other)
  Sender: FDA-Public Use
  Company Number: None

PATIENT
  Age: 41 Year
  Sex: Female

DRUGS (2)
  1. CIPROXIN [CIPROFLOXACIN HYDROCHLORIDE] [Suspect]
     Active Substance: CIPROFLOXACIN HYDROCHLORIDE
     Indication: ANTIBIOTIC THERAPY
     Dosage: ?          QUANTITY:1 TABLET(S);?
     Route: 048
  2. NIL [Concomitant]

REACTIONS (16)
  - Fatigue [None]
  - Tendon disorder [None]
  - Gait inability [None]
  - Muscle strain [None]
  - Peripheral sensory neuropathy [None]
  - Myelopathy [None]
  - Muscle atrophy [None]
  - Fibromyalgia [None]
  - Bone pain [None]
  - Arthropathy [None]
  - Muscle rupture [None]
  - Myofascial pain syndrome [None]
  - Ankylosing spondylitis [None]
  - Joint noise [None]
  - Peripheral motor neuropathy [None]
  - Spinal instability [None]

NARRATIVE: CASE EVENT DATE: 20130120
